FAERS Safety Report 10040775 (Version 3)
Quarter: 2014Q2

REPORT INFORMATION
  Report Type: Spontaneous
  Country: FR (occurrence: FR)
  Receive Date: 20140327
  Receipt Date: 20140402
  Transmission Date: 20141212
  Serious: Yes (Life-Threatening, Hospitalization)
  Sender: FDA-Public Use
  Company Number: PHHY2014FR031037

PATIENT
  Age: 66 Year
  Sex: Male

DRUGS (11)
  1. LOXEN [Suspect]
     Indication: HYPERTENSION
     Dosage: 20 MG, QD
     Route: 048
  2. LOXEN [Suspect]
     Dosage: 20 DF, (20 MG)
     Route: 048
     Dates: start: 20130713
  3. LOXEN [Suspect]
     Dosage: 40 DF, (20 MG)
     Route: 048
     Dates: start: 20140201
  4. SPIRONOLACTONE [Suspect]
     Indication: HYPERTENSION
     Dosage: 100 MG, DAILY
     Route: 048
  5. SPIRONOLACTONE [Suspect]
     Dosage: 20 DF, (25 MG) (ESTIMATED DOSE 500 MG)
     Route: 048
     Dates: start: 20130713
  6. ATENOLOL [Suspect]
     Indication: HYPERTENSION
     Dosage: 100 MG, DAILY
     Route: 048
  7. ATENOLOL [Suspect]
     Dosage: 15 DF, (100 MG) (ESTIMATED DOSE 1500 MG)
     Route: 048
     Dates: start: 20130713
  8. TENORMIN [Suspect]
     Dosage: 50 MG, QD
     Route: 048
  9. TENORMIN [Suspect]
     Dosage: 24 DF, (50 MG) (ESTIMATED DOSE 1200 MG)
     Route: 048
     Dates: start: 20140201
  10. PRAZEPAM [Suspect]
     Dosage: UNK UKN, UNK
     Route: 048
  11. PRAZEPAM [Suspect]
     Dosage: 10 MG, UNK
     Dates: start: 20130713

REACTIONS (3)
  - Vasoplegia syndrome [Recovered/Resolved]
  - Cardiogenic shock [Recovered/Resolved]
  - Hypokalaemia [Recovered/Resolved]
